FAERS Safety Report 6084615-3 (Version None)
Quarter: 2009Q1

REPORT INFORMATION
  Report Type: 
  Country: None (occurrence: None)
  Receive Date: 20090219
  Receipt Date: 20090213
  Transmission Date: 20090719
  Serious: No
  Sender: FDA-Public Use
  Company Number: US-B.I. PHARMACEUTICALS,INC./RIDGEFIELD-2009-BP-01976BP

PATIENT
  Sex: Male
  Weight: 57 kg

DRUGS (2)
  1. FLOMAX [Suspect]
     Indication: BENIGN PROSTATIC HYPERPLASIA
     Dosage: .4MG
     Route: 048
     Dates: start: 20090101, end: 20090212
  2. PLAVIX [Concomitant]
     Indication: ANTICOAGULANT THERAPY

REACTIONS (3)
  - ANORGASMIA [None]
  - ERECTION INCREASED [None]
  - PAINFUL ERECTION [None]
